FAERS Safety Report 10049470 (Version 2)
Quarter: 2014Q2

REPORT INFORMATION
  Report Type: Spontaneous
  Country: ES (occurrence: ES)
  Receive Date: 20140401
  Receipt Date: 20140417
  Transmission Date: 20141212
  Serious: Yes (Other)
  Sender: FDA-Public Use
  Company Number: ES-ROCHE-1370452

PATIENT
  Age: 22 Year
  Sex: Male

DRUGS (2)
  1. OMALIZUMAB [Suspect]
     Indication: DERMATITIS ATOPIC
     Route: 058
  2. CICLOSPORIN [Suspect]
     Indication: DERMATITIS ATOPIC
     Dosage: PER DAY
     Route: 042

REACTIONS (4)
  - Eczema herpeticum [Recovered/Resolved]
  - Conjunctivitis [Unknown]
  - Drug ineffective [Unknown]
  - Off label use [Unknown]
